FAERS Safety Report 10884572 (Version 1)
Quarter: 2015Q1

REPORT INFORMATION
  Report Type: Report from Study
  Country: US (occurrence: US)
  Receive Date: 20150304
  Receipt Date: 20150304
  Transmission Date: 20150721
  Serious: No
  Sender: FDA-Public Use
  Company Number: US-CELGENEUS-USA-2015025245

PATIENT
  Age: 54 Year
  Sex: Female
  Weight: 86.26 kg

DRUGS (4)
  1. AUGMENTED BETAMETHASONE [Concomitant]
     Indication: PSORIATIC ARTHROPATHY
     Route: 065
  2. CLOBETASOL PROPIONATE. [Concomitant]
     Active Substance: CLOBETASOL PROPIONATE
     Indication: PSORIATIC ARTHROPATHY
     Route: 065
  3. METHOTREXATE [Concomitant]
     Active Substance: METHOTREXATE
     Indication: PRODUCT USED FOR UNKNOWN INDICATION
     Route: 065
  4. OTEZLA [Suspect]
     Active Substance: APREMILAST
     Indication: PSORIATIC ARTHROPATHY
     Dosage: 30 MILLIGRAM
     Route: 048

REACTIONS (1)
  - Headache [Unknown]
